FAERS Safety Report 17804179 (Version 2)
Quarter: 2020Q3

REPORT INFORMATION
  Report Type: Spontaneous
  Country: PH (occurrence: AU)
  Receive Date: 20200519
  Receipt Date: 20200702
  Transmission Date: 20201102
  Serious: Yes (Other)
  Sender: FDA-Public Use
  Company Number: AU-GLAXOSMITHKLINE-AU2020082460

PATIENT
  Age: 37 Year
  Sex: Male

DRUGS (2)
  1. FLIXOTIDE (CFC?FREE) [Suspect]
     Active Substance: FLUTICASONE PROPIONATE
     Dosage: UNK, UNK, TID
     Dates: start: 202003
  2. FLIXOTIDE (CFC?FREE) [Suspect]
     Active Substance: FLUTICASONE PROPIONATE
     Indication: ASTHMA
     Dosage: 125 ?G, BID

REACTIONS (6)
  - Fatigue [Recovered/Resolved]
  - Overdose [Unknown]
  - Pyrexia [Recovered/Resolved]
  - Syncope [Recovered/Resolved]
  - Dizziness [Recovered/Resolved]
  - Discomfort [Unknown]

NARRATIVE: CASE EVENT DATE: 20200506
